FAERS Safety Report 9157086 (Version 3)
Quarter: 2013Q4

REPORT INFORMATION
  Report Type: Spontaneous
  Country: US (occurrence: US)
  Receive Date: 20130312
  Receipt Date: 20131001
  Transmission Date: 20140711
  Serious: Yes (Other)
  Sender: FDA-Public Use
  Company Number: US-PFIZER INC-2013080680

PATIENT
  Age: 58 Year
  Sex: Female
  Weight: 53.52 kg

DRUGS (14)
  1. LYRICA [Suspect]
     Indication: NEURALGIA
     Dosage: 150 MG, 2X/DAY
     Dates: start: 2008, end: 20130302
  2. FLONASE [Concomitant]
     Dosage: UNK
  3. COMPAZINE [Concomitant]
     Dosage: UNK
  4. MILK OF MAGNESIA [Concomitant]
     Dosage: UNK
  5. PERCOCET [Concomitant]
     Dosage: UNK
  6. CELEXA [Concomitant]
     Dosage: UNK
  7. ZANAFLEX [Concomitant]
     Dosage: UNK
  8. ATARAX [Concomitant]
     Dosage: UNK
  9. LEVOTHYROXINE [Concomitant]
     Dosage: UNK
  10. XANAX [Concomitant]
     Dosage: UNK
  11. PRAVACHOL [Concomitant]
     Dosage: UNK
  12. WELLBUTRIN SR [Concomitant]
     Dosage: UNK
  13. AMBIEN [Concomitant]
     Dosage: UNK
  14. FISH OIL [Concomitant]
     Dosage: UNK

REACTIONS (2)
  - Chronic lymphocytic leukaemia [Not Recovered/Not Resolved]
  - Neuralgia [Not Recovered/Not Resolved]
